FAERS Safety Report 14128120 (Version 2)
Quarter: 2017Q4

REPORT INFORMATION
  Report Type: Spontaneous
  Country: GB (occurrence: GB)
  Receive Date: 20171026
  Receipt Date: 20171031
  Transmission Date: 20180321
  Serious: Yes (Other)
  Sender: FDA-Public Use
  Company Number: GB-JNJFOC-20171017926

PATIENT
  Age: 31 Year
  Sex: Female
  Weight: 81 kg

DRUGS (4)
  1. PREDNISOLONE. [Concomitant]
     Active Substance: PREDNISOLONE
     Indication: PRODUCT USED FOR UNKNOWN INDICATION
     Dosage: CUMULATIVE DOSE TO FIRST REACTION: 6.0????DOSE:06 DOSE (UNIT UNSPECIFIED)
     Route: 065
     Dates: start: 20171005
  2. CETIRIZINE [Concomitant]
     Active Substance: CETIRIZINE HYDROCHLORIDE
     Indication: PRODUCT USED FOR UNKNOWN INDICATION
     Dosage: CUMULATIVE DOSE TO FIRST REACTION: 6.0   ????DOSE:1 DOSE (UNIT UNSPECIFIED)
     Route: 065
     Dates: start: 20171009
  3. PSEUDOEPHEDRINE HYDROCHLORIDE. [Suspect]
     Active Substance: PSEUDOEPHEDRINE HYDROCHLORIDE
     Route: 065
  4. PSEUDOEPHEDRINE HYDROCHLORIDE. [Suspect]
     Active Substance: PSEUDOEPHEDRINE HYDROCHLORIDE
     Indication: UPPER RESPIRATORY TRACT INFECTION
     Route: 065
     Dates: start: 20171005

REACTIONS (4)
  - Urticaria [Recovered/Resolved]
  - Wheezing [Recovered/Resolved]
  - Lip swelling [Recovered/Resolved]
  - Chest discomfort [Recovered/Resolved]

NARRATIVE: CASE EVENT DATE: 20171006
